FAERS Safety Report 11985293 (Version 1)
Quarter: 2016Q1

REPORT INFORMATION
  Report Type: Not Available
  Country: DE (occurrence: US)
  Receive Date: 20160201
  Receipt Date: 20160201
  Transmission Date: 20160526
  Serious: No
  Sender: FDA-Public Use
  Company Number: DE-ANIPHARMA-2015-US-001142

PATIENT
  Age: 25 Year
  Sex: Male

DRUGS (2)
  1. LUVOX CR [Suspect]
     Active Substance: FLUVOXAMINE MALEATE
  2. FLUVOXAMINE (NON-SPECIFIC) [Suspect]
     Active Substance: FLUVOXAMINE
     Route: 048

REACTIONS (4)
  - Drug withdrawal syndrome [Unknown]
  - Agitation [Unknown]
  - Anxiety [Unknown]
  - Psychomotor hyperactivity [Unknown]
